FAERS Safety Report 9922705 (Version 3)
Quarter: 2014Q2

REPORT INFORMATION
  Report Type: Report from Study
  Country: US (occurrence: US)
  Receive Date: 20140225
  Receipt Date: 20140530
  Transmission Date: 20141212
  Serious: Yes (Hospitalization, Other)
  Sender: FDA-Public Use
  Company Number: PHEH2014US003745

PATIENT
  Age: 68 Year
  Sex: Female
  Weight: 63 kg

DRUGS (24)
  1. TOBI [Suspect]
     Indication: ASTHMA
     Dosage: 300 MG, BID
     Route: 048
  2. TOBI [Suspect]
     Indication: CHRONIC OBSTRUCTIVE PULMONARY DISEASE
  3. TOBI [Suspect]
     Indication: DYSPNOEA
  4. TOBI [Suspect]
     Indication: RESPIRATORY DISORDER
  5. TOBI [Suspect]
     Indication: BRONCHIECTASIS
  6. ALBUTEROL [Concomitant]
     Dosage: UNK UKN, PRN
  7. AUGMENTIN [Concomitant]
     Dosage: UNK UKN, EVERY 12 HRS
  8. VITAMIN C [Concomitant]
     Dosage: 1000 MG, QD
  9. ASTALIN [Concomitant]
     Dosage: UNK UKN, BID AS NEEDED
  10. QVAR [Concomitant]
     Dosage: 3 DF, 2 PUFF MORNING AND 1 PUFF IN NIGHT
     Route: 055
  11. CITRACAL [Concomitant]
     Dosage: 1000 MG, QD
  12. VITAMIN D3 [Concomitant]
     Dosage: 1000 U, QD
  13. FLEXERIL [Concomitant]
     Dosage: 10 MG, BID
  14. BENADRYL                           /00647601/ [Concomitant]
     Dosage: 50 MG, BID
  15. VITAMIN E [Concomitant]
     Dosage: 400 U, QD
  16. ACIDOPHILUS [Concomitant]
     Dosage: 175 MG, QD
  17. XOPENEX [Concomitant]
     Dosage: UNK UKN, TID AS NEEDED
  18. PATANOL [Concomitant]
     Dosage: 5 ML, BID (DROP BOTH EYE)
  19. OMEPRAZOLE [Concomitant]
     Dosage: 200 MG, QD
  20. THEOPHYLLINE [Concomitant]
     Dosage: 200 MG, QD
  21. THIOCTIC ACID [Concomitant]
     Dosage: 100 MG, QD
  22. TOBRAMYCIN [Concomitant]
     Dosage: UNK UKN, BID
     Route: 055
  23. LIPITOR [Concomitant]
     Dosage: 20 MG, AT BED TIME
  24. ASPIRIN [Concomitant]
     Dosage: 325 MG, QD

REACTIONS (23)
  - Cerebrovascular accident [Unknown]
  - Neurological decompensation [Unknown]
  - Cerebral ischaemia [Unknown]
  - Chest pain [Unknown]
  - Hypertension [Unknown]
  - Aortic arteriosclerosis [Unknown]
  - Diastolic dysfunction [Unknown]
  - Pulmonary hypertension [Unknown]
  - Atelectasis [Unknown]
  - Hearing impaired [Unknown]
  - Mitral valve incompetence [Unknown]
  - Presyncope [Unknown]
  - Oedema peripheral [Unknown]
  - Wheezing [Unknown]
  - Snoring [Unknown]
  - Orthopnoea [Unknown]
  - Gastrooesophageal reflux disease [Unknown]
  - Arthralgia [Unknown]
  - Chest discomfort [Unknown]
  - Ejection fraction decreased [Unknown]
  - Rib deformity [Unknown]
  - Cough [Unknown]
  - Dyspnoea [Unknown]
